FAERS Safety Report 6386762-5 (Version None)
Quarter: 2009Q4

REPORT INFORMATION
  Report Type: 
  Country: None (occurrence: None)
  Receive Date: 20091002
  Receipt Date: 20090929
  Transmission Date: 20100525
  Serious: Yes (Hospitalization)
  Sender: FDA-Public Use
  Company Number: A0809559A

PATIENT
  Age: 72 Year
  Sex: Female

DRUGS (5)
  1. LAMOTRIGINE [Suspect]
     Indication: EPILEPSY
     Dosage: 200MG TWICE PER DAY
     Route: 048
     Dates: start: 20090101
  2. PHENOBARBITAL [Concomitant]
  3. LEVOTHYROXINE SODIUM [Concomitant]
  4. ZOCOR [Concomitant]
  5. PLAVIX [Concomitant]

REACTIONS (3)
  - CONVULSION [None]
  - DRUG INEFFECTIVE [None]
  - DRUG LEVEL DECREASED [None]
